FAERS Safety Report 23039034 (Version 1)
Quarter: 2023Q4

REPORT INFORMATION
  Report Type: Spontaneous
  Country: US (occurrence: None)
  Receive Date: 20231005
  Receipt Date: 20231005
  Transmission Date: 20240109
  Serious: Yes (Life-Threatening)
  Sender: FDA-Public Use
  Company Number: None

PATIENT
  Age: 82 Year
  Sex: Female
  Weight: 58.97 kg

DRUGS (9)
  1. CLARITIN [Suspect]
     Active Substance: LORATADINE
     Indication: Hypersensitivity
     Dates: start: 2021
  2. CLARITIN [Suspect]
     Active Substance: LORATADINE
     Indication: Blood pressure measurement
  3. CLARITIN [Suspect]
     Active Substance: LORATADINE
     Indication: Thyroid disorder
  4. ZYRTEC [Suspect]
     Active Substance: CETIRIZINE HYDROCHLORIDE
  5. LISINOPRIL [Suspect]
     Active Substance: LISINOPRIL
  6. ACETAMINOPHEN AND IBUPROFEN [Suspect]
     Active Substance: ACETAMINOPHEN\IBUPROFEN
  7. TYLENOL [Suspect]
     Active Substance: ACETAMINOPHEN
  8. N.P. THYROID [Concomitant]
  9. MULTI-VITAMIN-MAGNESIUM-VIT D-3 [Concomitant]

REACTIONS (4)
  - Drug hypersensitivity [None]
  - Product formulation issue [None]
  - Anxiety [None]
  - Insomnia [None]

NARRATIVE: CASE EVENT DATE: 20000101
